FAERS Safety Report 6492067-4 (Version None)
Quarter: 2009Q4

REPORT INFORMATION
  Report Type: 
  Country: None (occurrence: None)
  Receive Date: 20091125
  Receipt Date: 20090610
  Transmission Date: 20100525
  Serious: Yes (Other)
  Sender: FDA-Public Use
  Company Number: 2009BH009712

PATIENT
  Age: 59 Year
  Sex: Female

DRUGS (20)
  1. DIANEAL [Suspect]
     Indication: PERITONEAL DIALYSIS
     Dosage: 17 L ; EVERY DAY ; IP
     Route: 033
     Dates: start: 20080801
  2. DIANEAL [Suspect]
     Indication: PERITONEAL DIALYSIS
     Dosage: 2 L; EVERY DAY, IP
     Route: 033
     Dates: start: 20080801
  3. GENTAMICIN [Concomitant]
  4. CEFAZOLIN [Concomitant]
  5. NIACIN [Concomitant]
  6. RENVELA [Concomitant]
  7. EPOGEN [Concomitant]
  8. PENTOXIFYLLINE [Concomitant]
  9. LANTUS [Concomitant]
  10. LEVOTHROID [Concomitant]
  11. NITROGLYCERIN [Concomitant]
  12. VITAMIN B-12 [Concomitant]
  13. TUMS [Concomitant]
  14. PLAVIX [Concomitant]
  15. LIPITOR [Concomitant]
  16. MIRALAX [Concomitant]
  17. VITAL D [Concomitant]
  18. NOVOLOG [Concomitant]
  19. METOCLOPRAMIDE HYDROCHLORIDE [Concomitant]
  20. ASPIRIN [Concomitant]

REACTIONS (2)
  - ABDOMINAL DISTENSION [None]
  - PERITONITIS BACTERIAL [None]
